FAERS Safety Report 5071977-9 (Version None)
Quarter: 2006Q3

REPORT INFORMATION
  Report Type: 
  Country: None (occurrence: None)
  Receive Date: 20060714
  Receipt Date: 20060529
  Transmission Date: 20061208
  Serious: No
  Sender: FDA-Public Use
  Company Number: 2006SP002256

PATIENT
  Age: 54 Year
  Sex: Female
  Weight: 80.7403 kg

DRUGS (3)
  1. LUNESTA [Suspect]
     Indication: INSOMNIA
     Dosage: 1 MG;QOD;ORAL
     Route: 048
     Dates: start: 20060501, end: 20060501
  2. TAMOXIFEN CITRATE [Concomitant]
  3. LORAZEPAM [Concomitant]

REACTIONS (2)
  - DYSGEUSIA [None]
  - MIDDLE INSOMNIA [None]
